FAERS Safety Report 5786665-0 (Version None)
Quarter: 2008Q2

REPORT INFORMATION
  Report Type: 
  Country: None (occurrence: None)
  Receive Date: 20080618
  Receipt Date: 20080605
  Transmission Date: 20081010
  Serious: Yes (Other)
  Sender: FDA-Public Use
  Company Number: JPI-P-003926

PATIENT
  Age: 72 Year
  Sex: Male

DRUGS (4)
  1. LUVOX [Suspect]
     Indication: DRUG USE FOR UNKNOWN INDICATION
     Dosage: (50 MG, 1 D), ORAL
     Route: 048
  2. FAMOTIDINE [Concomitant]
  3. ZOLPIDEM TARTRATE [Concomitant]
  4. CLOPIDOGREL BISULFATE [Concomitant]

REACTIONS (2)
  - NEUTROPHIL COUNT DECREASED [None]
  - WHITE BLOOD CELL COUNT DECREASED [None]
